FAERS Safety Report 20709789 (Version 1)
Quarter: 2022Q2

REPORT INFORMATION
  Report Type: Report from Study
  Country: FR (occurrence: FR)
  Receive Date: 20220414
  Receipt Date: 20220414
  Transmission Date: 20220721
  Serious: Yes (Death)
  Sender: FDA-Public Use
  Company Number: FR-PFIZER INC-202200549693

PATIENT

DRUGS (3)
  1. VINCRISTINE SULFATE [Suspect]
     Active Substance: VINCRISTINE SULFATE
     Indication: Glioma
     Dosage: 1.4 MG/M2, MAXIMUM 2MG ON DAYS 8 AND 29, IN 6-WEEK CYCLES, FOR AMAXIMUMOF 6 CYCLES
  2. LOMUSTINE [Suspect]
     Active Substance: LOMUSTINE
     Indication: Glioma
     Dosage: 110 MG/M2, ON DAY 1
  3. PROCARBAZINE [Suspect]
     Active Substance: PROCARBAZINE
     Indication: Glioma
     Dosage: 60 MG/M2, ON DAYS 8-21

REACTIONS (1)
  - Neurotoxicity [Fatal]
